FAERS Safety Report 4620625-8 (Version None)
Quarter: 2005Q1

REPORT INFORMATION
  Report Type: 
  Country: None (occurrence: None)
  Receive Date: 20050328
  Receipt Date: 20050323
  Transmission Date: 20050727
  Serious: Yes (Hospitalization)
  Sender: FDA-Public Use
  Company Number: CA-BRISTOL-MYERS SQUIBB COMPANY-12910089

PATIENT
  Age: 50 Year
  Sex: Female

DRUGS (11)
  1. CYCLOPHOSPHAMIDE [Suspect]
     Indication: BREAST CANCER METASTATIC
     Route: 042
     Dates: start: 20050215
  2. CAELYX [Suspect]
     Indication: BREAST CANCER METASTATIC
     Route: 042
     Dates: start: 20050215
  3. FENTANYL [Concomitant]
     Indication: PAIN
     Route: 062
     Dates: start: 20050201
  4. NEURONTIN [Concomitant]
     Indication: PAIN
     Route: 048
     Dates: start: 20050201
  5. IBUPROFEN [Concomitant]
     Indication: PAIN
     Route: 048
     Dates: start: 20050101
  6. PANTOPRAZOLE SODIUM [Concomitant]
     Indication: PROPHYLAXIS
     Route: 048
     Dates: start: 20050101
  7. DECADRON [Concomitant]
     Indication: PAIN
     Route: 048
     Dates: start: 20050201
  8. MAXERAN [Concomitant]
     Indication: NAUSEA
     Dosage: ONCE EVERY 4 HOURS
     Route: 048
     Dates: start: 20050201
  9. ATIVAN [Concomitant]
     Indication: INSOMNIA
     Route: 048
     Dates: start: 20050101
  10. CALCIUM GLUCONATE [Concomitant]
     Route: 048
     Dates: start: 20050101
  11. MORPHINE SULFATE [Concomitant]
     Indication: PAIN
     Dosage: EVERY FOUR HOURS
     Route: 048
     Dates: start: 20050101

REACTIONS (2)
  - DYSPNOEA [None]
  - PLEURAL EFFUSION [None]
